FAERS Safety Report 7931076-2 (Version None)
Quarter: 2011Q4

REPORT INFORMATION
  Report Type: 
  Country: None (occurrence: None)
  Receive Date: 20111118
  Receipt Date: 20111118
  Transmission Date: 20120403
  Serious: Yes (Other)
  Sender: FDA-Public Use
  Company Number: None

PATIENT
  Age: 43 Year
  Sex: Female
  Weight: 78.0187 kg

DRUGS (2)
  1. ACETYLCYSTEINE [Suspect]
     Indication: DYSPNOEA
     Dosage: 10% MUCOMYST 4ML 4XDAY INHALATION
     Route: 055
     Dates: start: 20111104
  2. ACETYLCYSTEINE [Suspect]
     Indication: PNEUMONIA
     Dosage: 10% MUCOMYST 4ML 4XDAY INHALATION
     Route: 055
     Dates: start: 20111104

REACTIONS (2)
  - RASH ERYTHEMATOUS [None]
  - THROAT TIGHTNESS [None]
